FAERS Safety Report 8151494-X (Version None)
Quarter: 2012Q1

REPORT INFORMATION
  Report Type: 
  Country: None (occurrence: None)
  Receive Date: 20120220
  Receipt Date: 20120213
  Transmission Date: 20120608
  Serious: Yes (Hospitalization)
  Sender: FDA-Public Use
  Company Number: US-AMGEN-US225531

PATIENT
  Age: 63 Year
  Sex: Female

DRUGS (11)
  1. POTASSIUM CHLORIDE [Concomitant]
     Dosage: 20 MEQ, QD
     Route: 065
  2. ROMIPLOSTIM [Suspect]
     Dosage: UNK UNK, UNK
     Route: 058
     Dates: start: 20070614
  3. LENALIDOMIDE [Concomitant]
     Dosage: 10 MG, QD
     Route: 048
     Dates: start: 20070514
  4. ENALAPRIL [Concomitant]
     Dosage: 5 MG, QD
     Route: 065
  5. MAGNESIUM OXIDE [Concomitant]
     Dosage: 400 MG, BID
     Route: 065
  6. PROCRIT [Suspect]
     Indication: ANAEMIA
     Dosage: 40000 IU, UNK
     Route: 058
     Dates: start: 20070517
  7. ROMIPLOSTIM [Suspect]
     Indication: MYELODYSPLASTIC SYNDROME
     Dosage: UNK UNK, UNK
     Route: 058
     Dates: start: 20070517
  8. FUROSEMIDE [Concomitant]
     Dosage: 40 MG, QD
     Route: 065
  9. OXYCODONE HCL [Concomitant]
     Dosage: 5 MG, PRN
     Route: 065
  10. PANTOPRAZOLE SODIUM [Concomitant]
     Dosage: 40 MG, QD
     Route: 065
  11. LEVOTHYROXINE SODIUM [Concomitant]
     Dosage: .15 MG, QD
     Route: 065

REACTIONS (2)
  - MUSCLE SPASMS [None]
  - BACK PAIN [None]
